FAERS Safety Report 10561086 (Version 5)
Quarter: 2015Q1

REPORT INFORMATION
  Report Type: Spontaneous
  Country: US (occurrence: US)
  Receive Date: 20141103
  Receipt Date: 20150305
  Transmission Date: 20150720
  Serious: No
  Sender: FDA-Public Use
  Company Number: US-GLAXOSMITHKLINE-A1069880A

PATIENT

DRUGS (9)
  1. VOTRIENT [Suspect]
     Active Substance: PAZOPANIB HYDROCHLORIDE
     Indication: RENAL CANCER
     Dosage: 400 MG, QD
     Route: 048
     Dates: start: 20150305
  2. JALYN [Concomitant]
     Active Substance: DUTASTERIDE\TAMSULOSIN HYDROCHLORIDE
  3. VOTRIENT [Suspect]
     Active Substance: PAZOPANIB HYDROCHLORIDE
     Dosage: 400 MG, QD
     Route: 048
     Dates: start: 201403
  4. LISINOPRIL TABLET [Concomitant]
     Active Substance: LISINOPRIL
     Dosage: 10 MG, U
  5. VOTRIENT [Suspect]
     Active Substance: PAZOPANIB HYDROCHLORIDE
     Indication: METASTASES TO BONE
     Dosage: UNK
  6. GABAPENTIN CAPSULE [Concomitant]
     Active Substance: GABAPENTIN
     Dosage: 300 MG, U
  7. VOTRIENT [Suspect]
     Active Substance: PAZOPANIB HYDROCHLORIDE
     Dosage: 400 MG, BID
     Route: 048
     Dates: end: 201501
  8. METOPROLOL + HYDROCHLOROTHIAZIDE TABLET [Concomitant]
  9. HYDROCHLOROTHIAZIDE CAPSULE [Concomitant]
     Dosage: 12.5 MG, U

REACTIONS (7)
  - Dizziness [Unknown]
  - Upper respiratory tract infection [Unknown]
  - Adverse drug reaction [Unknown]
  - Hypertension [Unknown]
  - Diarrhoea [Unknown]
  - Fatigue [Unknown]
  - Gastrooesophageal reflux disease [Unknown]
